FAERS Safety Report 14367836 (Version 7)
Quarter: 2018Q4

REPORT INFORMATION
  Report Type: Spontaneous
  Country: US (occurrence: US)
  Receive Date: 20180109
  Receipt Date: 20181121
  Transmission Date: 20190204
  Serious: Yes (Other)
  Sender: FDA-Public Use
  Company Number: US-PFIZER INC-2017101974

PATIENT
  Age: 64 Year
  Sex: Male
  Weight: 92.99 kg

DRUGS (28)
  1. CORTEL [Concomitant]
     Active Substance: TELMISARTAN
     Indication: HORMONE LEVEL ABNORMAL
     Dosage: 20MG IN MORNING AND NIGHT
  2. BISOPROLOL /HCTZ [Concomitant]
     Indication: BLOOD PRESSURE ABNORMAL
     Dosage: 1 DF, DAILY, [BISOPROLOL FUMARATE 2.5 MG, HYDROCHLOROTHIAZIDE 6.25MG]
     Route: 048
     Dates: start: 2015
  3. GENOTROPIN MQ [Suspect]
     Active Substance: SOMATROPIN
     Indication: HYPOPITUITARISM
     Dosage: UNK
     Dates: start: 201701
  4. DESMOPRESSIN [Concomitant]
     Active Substance: DESMOPRESSIN
     Indication: DIABETES INSIPIDUS
     Dosage: 1 MG, 2X/DAY (0.2 MG FIVE TABLETS IN THE MORNING AND FIVE AT NIGHT)
     Route: 048
     Dates: start: 2005
  5. TESTOSTERONE. [Concomitant]
     Active Substance: TESTOSTERONE
     Indication: ANDROGEN DEFICIENCY
     Dosage: 0.75 ML, UNK (0.75CC INJECTION EVERY TWO WEEKS)
  6. VITAMIN D [Concomitant]
     Active Substance: CHOLECALCIFEROL
     Indication: VITAMIN D DEFICIENCY
     Dosage: 1 DF, WEEKLY, (50,000 UNITS ONE CAPSULE BY MOUTH ONCE A WEEK)
     Route: 048
     Dates: start: 2013
  7. ALLOPURINOL. [Concomitant]
     Active Substance: ALLOPURINOL
     Indication: BLOOD URIC ACID INCREASED
     Dosage: 300 MG, 1X/DAY
     Route: 048
     Dates: start: 2017
  8. SYNTHROID [Concomitant]
     Active Substance: LEVOTHYROXINE SODIUM
     Indication: THYROID DISORDER
     Dosage: 100 UG, DAILY (100 MCG EVERY MORNING)
     Route: 048
     Dates: start: 2005
  9. HYDROCORTISONE. [Concomitant]
     Active Substance: HYDROCORTISONE
     Indication: HORMONE THERAPY
     Dosage: 100 MG, 3X/DAY
  10. GENOTROPIN MQ [Suspect]
     Active Substance: SOMATROPIN
     Dosage: 0.2 MG, 1X/DAY (0.2MG INJECTION ONCE DAILY)
     Dates: start: 201701
  11. TESTOSTERONE. [Concomitant]
     Active Substance: TESTOSTERONE
     Dosage: 0.5 CC ONE INJECTION ONCE A WEEK
  12. OMEPRAZOLE. [Concomitant]
     Active Substance: OMEPRAZOLE
     Indication: GASTROOESOPHAGEAL REFLUX DISEASE
     Dosage: 20 MG, 2X/DAY (20MG ONE CAPSULE IN THE MORNING, ONE CAPSULE AT NIGHT)
     Dates: start: 2015
  13. TUMS [Concomitant]
     Active Substance: CALCIUM CARBONATE
     Indication: OSTEOPOROSIS
     Dosage: 3000 MG, 1X/DAY
  14. HYDROCODONE [Concomitant]
     Active Substance: HYDROCODONE
     Indication: PAIN
     Dosage: AS NEEDED (10/325MG 2 TO 4 TABLETS BY MOUTH EVERY DAY AS NEEDED UP TO 4 TABLETS MAX)
     Route: 048
     Dates: start: 2017
  15. ATORVASTATIN [Concomitant]
     Active Substance: ATORVASTATIN
     Dosage: UNK
  16. GABAPENTIN. [Concomitant]
     Active Substance: GABAPENTIN
     Indication: PAIN
     Dosage: 900 MG, 3X/DAY
     Dates: start: 2015
  17. VITAMIN C [Concomitant]
     Active Substance: ASCORBIC ACID
     Dosage: UNK
  18. BEVESPI AEROSPHERE [Concomitant]
     Active Substance: FORMOTEROL FUMARATE\GLYCOPYRROLATE
     Indication: CHRONIC OBSTRUCTIVE PULMONARY DISEASE
     Dosage: UNK
  19. GENOTROPIN MQ [Suspect]
     Active Substance: SOMATROPIN
     Indication: ASTHENIA
     Dosage: 0.2 MG, 1X/DAY (ONCE A NIGHT)
  20. DESMOPRESSIN [Concomitant]
     Active Substance: DESMOPRESSIN
     Dosage: 0.02 MG, DAILY [TAKES 10 TABLETS DAILY, TAKES 5 TABLETS IN THE MORNING AND 5 TABLETS AT NIGHT]
     Dates: start: 200503
  21. HYDROCORTISONE. [Concomitant]
     Active Substance: HYDROCORTISONE
     Dosage: 30 MG, DAILY (20MG ONE TABLET IN THE MORNING, HALF TABLET AT NIGHT BY MOUTH EVERY DAY)
     Route: 048
     Dates: start: 2005
  22. NIACIN. [Concomitant]
     Active Substance: NIACIN
     Dosage: 1000 MG, 2X/DAY
  23. NIACIN. [Concomitant]
     Active Substance: NIACIN
     Dosage: 4000 MG, DAILY
  24. GENOTROPIN MQ [Suspect]
     Active Substance: SOMATROPIN
     Indication: GROWTH HORMONE DEFICIENCY
     Dosage: 0.2 MG, DAILY (0.2MG INJECT OR THIGH OR STOMACH EVERY NIGHT)
     Dates: start: 20170303
  25. GENOTROPIN MQ [Suspect]
     Active Substance: SOMATROPIN
     Indication: HYPERPITUITARISM
     Dosage: 0.2 MG, 1X/DAY (INJECTION ONCE AT NIGHT)
     Dates: start: 2017
  26. MELOXICAM. [Concomitant]
     Active Substance: MELOXICAM
     Indication: PAIN
     Dosage: 15 MG, 1X/DAY
     Route: 048
     Dates: start: 2017
  27. XANAX [Concomitant]
     Active Substance: ALPRAZOLAM
     Indication: SLEEP DISORDER
     Dosage: 1 MG, 1X/DAY, (ONCE EVERY NIGHT)
  28. VITAMIN B12 + FOLIC ACID [Concomitant]
     Dosage: 1 ML, (1 CC INJECTION IN THIGH EVERY 2 WEEKS)

REACTIONS (25)
  - Dementia [Unknown]
  - Rotator cuff syndrome [Unknown]
  - Red blood cell count decreased [Unknown]
  - Granulocytes abnormal [Unknown]
  - Blood cholesterol increased [Unknown]
  - Blood thyroid stimulating hormone decreased [Unknown]
  - Granulocyte count increased [Unknown]
  - Blood testosterone decreased [Unknown]
  - Thyroxine decreased [Unknown]
  - Blood triglycerides increased [Unknown]
  - Apolipoprotein B increased [Unknown]
  - Vitamin B12 increased [Unknown]
  - Blood testosterone free decreased [Unknown]
  - Fall [Unknown]
  - Asthenia [Not Recovered/Not Resolved]
  - Mean cell haemoglobin increased [Unknown]
  - Lymphocyte percentage decreased [Unknown]
  - Lymphocyte count decreased [Unknown]
  - Low density lipoprotein increased [Unknown]
  - Impaired fasting glucose [Unknown]
  - Blood folate increased [Unknown]
  - Free androgen index decreased [Unknown]
  - Blood glucose decreased [Unknown]
  - Mean cell volume increased [Unknown]
  - C-reactive protein increased [Unknown]

NARRATIVE: CASE EVENT DATE: 20170608
